FAERS Safety Report 11059497 (Version 2)
Quarter: 2015Q2

REPORT INFORMATION
  Report Type: Report from Study
  Country: PA (occurrence: PA)
  Receive Date: 20150423
  Receipt Date: 20150526
  Transmission Date: 20150821
  Serious: Yes (Death, Hospitalization)
  Sender: FDA-Public Use
  Company Number: PHHY2015PA048154

PATIENT
  Age: 65 Year
  Sex: Male

DRUGS (1)
  1. EXJADE [Suspect]
     Active Substance: DEFERASIROX
     Indication: MYELODYSPLASTIC SYNDROME
     Dosage: 1 DF, QD
     Route: 065

REACTIONS (2)
  - Leukaemia [Fatal]
  - Myelodysplastic syndrome transformation [Unknown]

NARRATIVE: CASE EVENT DATE: 20150418
